FAERS Safety Report 7463936-3 (Version None)
Quarter: 2011Q2

REPORT INFORMATION
  Report Type: 
  Country: None (occurrence: None)
  Receive Date: 20110506
  Receipt Date: 20110504
  Transmission Date: 20111010
  Serious: Yes (Hospitalization)
  Sender: FDA-Public Use
  Company Number: US-GENZYME-FABR-1001876

PATIENT
  Sex: Male
  Weight: 59.1 kg

DRUGS (8)
  1. PROGRAF [Concomitant]
     Indication: RENAL TRANSPLANT
     Dosage: 3 MG, BID
     Dates: start: 20110104
  2. CELLCEPT [Concomitant]
     Indication: RENAL TRANSPLANT
     Dosage: 1 G, BID
     Dates: start: 20101026
  3. FABRAZYME [Suspect]
     Dosage: 70 UNK, Q4W
     Route: 042
  4. LEXAPRO [Concomitant]
     Indication: PRODUCT USED FOR UNKNOWN INDICATION
     Dosage: 10 MG, QD
     Dates: start: 20101026
  5. COUMADIN [Concomitant]
     Indication: PRODUCT USED FOR UNKNOWN INDICATION
     Dosage: 7.5 MG, QD
     Dates: start: 20110329
  6. ASPIRIN [Concomitant]
     Indication: PRODUCT USED FOR UNKNOWN INDICATION
     Dosage: 81 MG, QD
     Dates: start: 20101026
  7. SIMVASTATIN [Concomitant]
     Indication: PRODUCT USED FOR UNKNOWN INDICATION
     Dosage: 20 MG, QD
     Dates: start: 20101026
  8. FABRAZYME [Suspect]
     Indication: FABRY'S DISEASE
     Dosage: 60 MG, UNK
     Route: 042
     Dates: start: 20110404

REACTIONS (1)
  - RENAL DISORDER [None]
